FAERS Safety Report 4324593-8 (Version None)
Quarter: 2004Q1

REPORT INFORMATION
  Report Type: 
  Country: None (occurrence: None)
  Receive Date: 20040323
  Receipt Date: 20040308
  Transmission Date: 20041129
  Serious: Yes (Other)
  Sender: FDA-Public Use
  Company Number: 2004-UK-00223UK

PATIENT
  Age: 25 Year
  Sex: Female

DRUGS (3)
  1. COMBIVENT [Suspect]
     Dosage: 8 PUFFS DAILY (NR, 8 PUFFS DAILY)  IH
     Route: 055
  2. SEROQUEL [Suspect]
     Indication: PANIC REACTION
     Dosage: 225 MG (NR) PO
     Route: 048
     Dates: start: 19980101
  3. SEROQUEL [Suspect]
     Indication: SCHIZOPHRENIA
     Dosage: 225 MG (NR) PO
     Route: 048
     Dates: start: 19980101

REACTIONS (4)
  - ABORTION SPONTANEOUS [None]
  - COMPLICATIONS OF MATERNAL EXPOSURE TO THERAPEUTIC DRUGS [None]
  - MATERNAL DRUGS AFFECTING FOETUS [None]
  - PREGNANCY [None]
